FAERS Safety Report 5531583-6 (Version None)
Quarter: 2007Q4

REPORT INFORMATION
  Report Type: 
  Country: None (occurrence: None)
  Receive Date: 20071203
  Receipt Date: 20071123
  Transmission Date: 20080405
  Serious: Yes (Hospitalization, Other)
  Sender: FDA-Public Use
  Company Number: PHBS2007BR19823

PATIENT
  Age: 75 Year
  Sex: Female
  Weight: 63.4 kg

DRUGS (6)
  1. DICLOFENAC [Suspect]
     Dosage: 1 TABLET, QD
  2. SYNTHROID [Concomitant]
     Indication: HYPOTHYROIDISM
     Dosage: 1 TABLET  IN THE MORNING
     Route: 048
  3. LOSARTAN POTASSIUM AND HYDROCHLOROTHIAZIDE [Concomitant]
     Indication: HYPERTENSION
     Dosage: 50/12.5 MG
     Route: 048
  4. CONCOR [Concomitant]
     Indication: TACHYCARDIA
     Dosage: 1 TABLET IN THE MORNING
     Route: 048
  5. GLIMEPIRIDE [Concomitant]
     Indication: DIABETES MELLITUS
     Route: 048
  6. GALVUS [Concomitant]
     Indication: DIABETES MELLITUS

REACTIONS (6)
  - CHOLELITHIASIS [None]
  - DRUG HYPERSENSITIVITY [None]
  - GALLBLADDER OPERATION [None]
  - HYSTERECTOMY [None]
  - MITRAL VALVE CALCIFICATION [None]
  - PRURITUS [None]
